FAERS Safety Report 23348966 (Version 1)
Quarter: 2023Q4

REPORT INFORMATION
  Report Type: Spontaneous
  Country: CN (occurrence: CN)
  Receive Date: 20231229
  Receipt Date: 20231229
  Transmission Date: 20240109
  Serious: Yes (Other)
  Sender: FDA-Public Use
  Company Number: None

PATIENT
  Age: 59 Year
  Sex: Male
  Weight: 71 kg

DRUGS (1)
  1. IVABRADINE HYDROCHLORIDE [Suspect]
     Active Substance: IVABRADINE HYDROCHLORIDE
     Indication: Cardiac failure chronic
     Dosage: 1 DF, BID
     Route: 048
     Dates: start: 20231120, end: 20231123

REACTIONS (5)
  - Headache [Recovered/Resolved]
  - Photopsia [Recovered/Resolved]
  - Dizziness [Recovered/Resolved]
  - Asthenopia [Recovered/Resolved]
  - Eyelid ptosis [Recovered/Resolved]

NARRATIVE: CASE EVENT DATE: 20231123
